FAERS Safety Report 26039986 (Version 1)
Quarter: 2025Q4

REPORT INFORMATION
  Report Type: Spontaneous
  Country: US (occurrence: US)
  Receive Date: 20251113
  Receipt Date: 20251113
  Transmission Date: 20260117
  Serious: No
  Sender: MERCK SHARP & DOHME LLC
  Company Number: US-009507513-2344392

PATIENT
  Sex: Male
  Weight: 70.307 kg

DRUGS (20)
  1. WINREVAIR [Suspect]
     Active Substance: SOTATERCEPT-CSRK
     Indication: Product used for unknown indication
  2. WINREVAIR [Suspect]
     Active Substance: SOTATERCEPT-CSRK
  3. WINREVAIR [Suspect]
     Active Substance: SOTATERCEPT-CSRK
  4. WINREVAIR [Suspect]
     Active Substance: SOTATERCEPT-CSRK
  5. JARDIANCE [Concomitant]
     Active Substance: EMPAGLIFLOZIN
  6. PFIZER-BIONTECH COVID-19 VACCINE [Concomitant]
     Active Substance: TOZINAMERAN
  7. MAGNESIUM OXIDE [Concomitant]
     Active Substance: MAGNESIUM OXIDE
  8. ELIQUIS [Concomitant]
     Active Substance: APIXABAN
  9. CIALIS [Concomitant]
     Active Substance: TADALAFIL
  10. PLAVIX [Concomitant]
     Active Substance: CLOPIDOGREL BISULFATE
  11. TORSEMIDE [Concomitant]
     Active Substance: TORSEMIDE
  12. ONDANSETRON HYDROCHLORIDE [Concomitant]
     Active Substance: ONDANSETRON HYDROCHLORIDE
  13. ORENITRAM [Suspect]
     Active Substance: TREPROSTINIL
     Indication: Pulmonary arterial hypertension
     Dosage: THE PATIENT WAS SUPPLIED WITH ORENITRAM 5 MG AND 0.125 MG AND THE CURRENT DOSE WAS REPORTED AS 10...
     Route: 048
     Dates: start: 20180824
  14. ORENITRAM [Suspect]
     Active Substance: TREPROSTINIL
     Indication: Pulmonary arterial hypertension
     Dosage: TIME INTERVAL: 0.33333333 DAYS: THE PATIENT WAS SUPPLIED WITH ORENITRAM 5 MG AND 0.125 MG AND THE...
     Route: 048
  15. METOLAZONE [Concomitant]
     Active Substance: METOLAZONE
  16. EPLERENONE [Concomitant]
     Active Substance: EPLERENONE
  17. OXYGEN [Concomitant]
     Active Substance: OXYGEN
  18. FOLIC ACID\IRON [Concomitant]
     Active Substance: FOLIC ACID\IRON
  19. FAMOTIDINE [Concomitant]
     Active Substance: FAMOTIDINE
  20. PLAVIX [Concomitant]
     Active Substance: CLOPIDOGREL BISULFATE

REACTIONS (2)
  - Injection site nodule [Recovered/Resolved]
  - Injection site bruising [Recovering/Resolving]
